FAERS Safety Report 7532241-9 (Version None)
Quarter: 2011Q2

REPORT INFORMATION
  Report Type: 
  Country: None (occurrence: None)
  Receive Date: 20110608
  Receipt Date: 20100901
  Transmission Date: 20111010
  Serious: No
  Sender: FDA-Public Use
  Company Number: US-TEVA-247455USA

PATIENT
  Sex: Female

DRUGS (1)
  1. ENJUVIA [Suspect]

REACTIONS (4)
  - VOMITING [None]
  - PERSONALITY CHANGE [None]
  - ALOPECIA [None]
  - MIGRAINE [None]
